FAERS Safety Report 15775998 (Version 10)
Quarter: 2019Q2

REPORT INFORMATION
  Report Type: Report from Study
  Country: US (occurrence: US)
  Receive Date: 20181231
  Receipt Date: 20190628
  Transmission Date: 20190711
  Serious: Yes (Hospitalization, Other)
  Sender: FDA-Public Use
  Company Number: US-B.I. PHARMACEUTICALS,INC./RIDGEFIELD-2018-BI-047414

PATIENT
  Sex: Male

DRUGS (2)
  1. OFEV [Suspect]
     Active Substance: NINTEDANIB
     Indication: IDIOPATHIC PULMONARY FIBROSIS
     Dosage: TAKE 1 CAPSULE BUY MOUTH TWICE A DAY 12 HOURS PART WITH FOOD
     Route: 048
     Dates: start: 20180809
  2. OFEV [Suspect]
     Active Substance: NINTEDANIB
     Dosage: TAKE 1 CAPSULE BY MOUTH EVERY 12 HOURS
     Route: 048

REACTIONS (18)
  - Abdominal pain upper [Unknown]
  - Gastric disorder [Recovered/Resolved]
  - Plasma cell myeloma [Unknown]
  - Fall [Unknown]
  - Decreased appetite [Unknown]
  - Asthenia [Unknown]
  - Diarrhoea [Unknown]
  - Constipation [Not Recovered/Not Resolved]
  - Nausea [Recovered/Resolved]
  - Taste disorder [Unknown]
  - Pleural effusion [Unknown]
  - Weight decreased [Recovered/Resolved]
  - Weight decreased [Unknown]
  - Dyspnoea [Not Recovered/Not Resolved]
  - Bronchitis [Unknown]
  - Nausea [Not Recovered/Not Resolved]
  - Diarrhoea [Recovered/Resolved]
  - Surgery [Not Recovered/Not Resolved]
